FAERS Safety Report 23162408 (Version 1)
Quarter: 2023Q4

REPORT INFORMATION
  Report Type: Spontaneous
  Country: EG (occurrence: EG)
  Receive Date: 20231109
  Receipt Date: 20231109
  Transmission Date: 20240109
  Serious: Yes (Hospitalization)
  Sender: FDA-Public Use
  Company Number: EG-BoehringerIngelheim-2023-BI-270323

PATIENT
  Age: 73 Year
  Sex: Male

DRUGS (2)
  1. ALTEPLASE [Suspect]
     Active Substance: ALTEPLASE
     Indication: Ischaemic stroke
     Dosage: HE RECEIVED SUSPECT DRUG  ACTYLISE 50 MG  BY IV ROUTE WITH A DOSE OF  5 MG IV BOLUS THEN 45 MG  IV I
     Route: 040
  2. ALTEPLASE [Suspect]
     Active Substance: ALTEPLASE
     Dosage: HE RECEIVED SUSPECT DRUG  ACTYLISE 50 MG  BY IV ROUTE WITH A DOSE OF  5 MG IV BOLUS THEN 45 MG  IV I
     Route: 042

REACTIONS (2)
  - Haemorrhagic stroke [Not Recovered/Not Resolved]
  - Feeling abnormal [Not Recovered/Not Resolved]

NARRATIVE: CASE EVENT DATE: 20230924
